FAERS Safety Report 5328441-9 (Version None)
Quarter: 2007Q2

REPORT INFORMATION
  Report Type: 
  Country: None (occurrence: None)
  Receive Date: 20070518
  Receipt Date: 20070509
  Transmission Date: 20071010
  Serious: Yes (Other)
  Sender: FDA-Public Use
  Company Number: JP-BAYER-200710258BYL

PATIENT
  Age: 73 Year
  Sex: Male
  Weight: 50 kg

DRUGS (11)
  1. BAY43-9006 [Suspect]
     Indication: HEPATIC NEOPLASM MALIGNANT
     Dosage: TOTAL DAILY DOSE: 800 MG  UNIT DOSE: 200 MG
     Route: 048
     Dates: start: 20070220, end: 20070227
  2. BAY43-9006 [Suspect]
     Dosage: TOTAL DAILY DOSE: 800 MG  UNIT DOSE: 200 MG
     Route: 048
     Dates: start: 20070306, end: 20070312
  3. STRONGER NEO MINOPHAGEN C [Concomitant]
     Indication: LIVER DISORDER
     Dosage: UNIT DOSE: 20 ML
     Route: 042
  4. URSO 250 [Concomitant]
     Indication: LIVER DISORDER
     Dosage: TOTAL DAILY DOSE: 300 MG  UNIT DOSE: 100 MG
     Route: 048
  5. MIKELAN [Concomitant]
     Indication: GLAUCOMATOCYCLITIC CRISES
     Route: 031
  6. TRUSOPT [Concomitant]
     Indication: GLAUCOMATOCYCLITIC CRISES
     Route: 031
  7. XALATAN [Concomitant]
     Indication: GLAUCOMATOCYCLITIC CRISES
     Route: 031
  8. FLUMETHOLON [Concomitant]
     Indication: PROPHYLAXIS
     Route: 031
  9. CYANOCOBALAMIN [Concomitant]
     Indication: NEUROPATHY PERIPHERAL
     Dosage: TOTAL DAILY DOSE: 1500 ?G  UNIT DOSE: 500 ?G
     Route: 048
  10. AMLODIN [Concomitant]
     Indication: HYPERTENSION
     Dosage: TOTAL DAILY DOSE: 2.5 MG  UNIT DOSE: 2.5 MG
     Route: 048
  11. GLYMESASON [Concomitant]
     Indication: PRURITUS
     Route: 062

REACTIONS (1)
  - CEREBRAL INFARCTION [None]
